FAERS Safety Report 9647607 (Version 2)
Quarter: 2014Q1

REPORT INFORMATION
  Report Type: Report from Study
  Country: US (occurrence: US)
  Receive Date: 20131028
  Receipt Date: 20140213
  Transmission Date: 20141002
  Serious: No
  Sender: FDA-Public Use
  Company Number: US-B.I. PHARMACEUTICALS,INC./RIDGEFIELD-2013-BI-32713BI

PATIENT
  Age: 76 Year
  Sex: Female

DRUGS (17)
  1. GILOTRIF [Suspect]
     Indication: NON-SMALL CELL LUNG CANCER
     Dosage: 30 MG
     Route: 048
     Dates: start: 20131005
  2. GILOTRIF [Suspect]
     Indication: LUNG CARCINOMA CELL TYPE UNSPECIFIED STAGE 0
     Dosage: 40 MG
     Route: 048
  3. INDAPAMIDE [Concomitant]
  4. METOPROLOL [Concomitant]
     Indication: BLOOD PRESSURE
  5. LUMIGAN [Concomitant]
     Indication: GLAUCOMA
  6. AZOPT [Concomitant]
     Indication: GLAUCOMA
  7. COMBIGAN GTTS [Concomitant]
     Indication: GLAUCOMA
  8. POTASSIUM [Concomitant]
  9. LEVOXYL [Concomitant]
     Indication: THYROID DISORDER
  10. LIPITOR [Concomitant]
     Indication: BLOOD CHOLESTEROL
  11. ZETIA [Concomitant]
  12. VITAMIN Q 10 B COMPLEX MULTIPLE VITAMIN [Concomitant]
  13. 3 FISH OIL [Concomitant]
     Indication: BLOOD TRIGLYCERIDES
  14. ACIDOPHILLIS [Concomitant]
  15. VITAMIN D [Concomitant]
  16. BIOTIN [Concomitant]
     Indication: PROPHYLAXIS
  17. ASA [Concomitant]

REACTIONS (6)
  - Dysphonia [Not Recovered/Not Resolved]
  - Diarrhoea [Recovered/Resolved]
  - Diarrhoea [Recovered/Resolved]
  - Skin discolouration [Recovered/Resolved]
  - Drug level increased [Not Recovered/Not Resolved]
  - Positron emission tomogram abnormal [Unknown]
